FAERS Safety Report 18221440 (Version 5)
Quarter: 2023Q4

REPORT INFORMATION
  Report Type: Spontaneous
  Country: US (occurrence: US)
  Receive Date: 20200902
  Receipt Date: 20231221
  Transmission Date: 20240109
  Serious: Yes (Other)
  Sender: FDA-Public Use
  Company Number: US-PFIZER INC-2020339752

PATIENT
  Age: 75 Year
  Sex: Female
  Weight: 85.9 kg

DRUGS (4)
  1. IBRANCE [Suspect]
     Active Substance: PALBOCICLIB
     Indication: Breast cancer female
     Dosage: 125 MG, CYCLIC (QD (DAILY) X 21 Q 28 DAYS)
     Dates: start: 20190725, end: 2019
  2. IBRANCE [Suspect]
     Active Substance: PALBOCICLIB
     Dosage: 125 MG, CYCLIC  (QD (DAILY) X 21 Q 28 DAYS)
     Route: 048
     Dates: start: 20190823
  3. IBRANCE [Suspect]
     Active Substance: PALBOCICLIB
     Dosage: 75 MG, CYCLIC (1 TAB DAILY FOR 21 DAYS, THEN OFF FOR 7 DAYS/TAKE 1-TAB ON DAYS 1-21 OF 28-DAY CYCLE)
     Route: 048
     Dates: start: 202105
  4. LETROZOLE [Concomitant]
     Active Substance: LETROZOLE
     Dosage: UNK
     Dates: start: 20190823

REACTIONS (4)
  - Myelosuppression [Unknown]
  - Leukopenia [Unknown]
  - Anaemia [Unknown]
  - Diarrhoea [Unknown]
